FAERS Safety Report 18721221 (Version 1)
Quarter: 2021Q1

REPORT INFORMATION
  Report Type: Spontaneous
  Country: CA (occurrence: CA)
  Receive Date: 20210109
  Receipt Date: 20210109
  Transmission Date: 20210419
  Serious: Yes (Life-Threatening, Hospitalization, Other)
  Sender: FDA-Public Use
  Company Number: CA-ACCORD-213428

PATIENT
  Age: 4 Year
  Sex: Male
  Weight: 19 kg

DRUGS (10)
  1. CASPOFUNGIN [Concomitant]
     Active Substance: CASPOFUNGIN
  2. FUROSEMIDE. [Concomitant]
     Active Substance: FUROSEMIDE
  3. METHOTREXATE. [Concomitant]
     Active Substance: METHOTREXATE
  4. IMATINIB/IMATINIB MESILATE [Concomitant]
     Active Substance: IMATINIB
  5. ONCASPAR [Concomitant]
     Active Substance: PEGASPARGASE
     Dosage: STRENGTH:3750 UNIT/ 5 ML, SINGLE USE VIAL
  6. OMEPRAZOLE. [Concomitant]
     Active Substance: OMEPRAZOLE
  7. CYTARABINE/CYTARABINE HYDROCHLORIDE/CYTARABINE OCFOSFATE [Concomitant]
     Active Substance: CYTARABINE
  8. MACROGOL [Concomitant]
     Active Substance: POLYETHYLENE GLYCOLS
  9. HYDROCORTISONE. [Concomitant]
     Active Substance: HYDROCORTISONE
  10. METHOTREXATE. [Suspect]
     Active Substance: METHOTREXATE
     Indication: ACUTE LYMPHOCYTIC LEUKAEMIA RECURRENT
     Dosage: EVERY 36 HOURS
     Route: 042

REACTIONS (2)
  - SARS-CoV-2 test negative [Unknown]
  - Mucosal inflammation [Unknown]
